FAERS Safety Report 6648984-5 (Version None)
Quarter: 2010Q1

REPORT INFORMATION
  Report Type: 
  Country: None (occurrence: None)
  Receive Date: 20100324
  Receipt Date: 20100315
  Transmission Date: 20100710
  Serious: Yes (Hospitalization)
  Sender: FDA-Public Use
  Company Number: GXKR2010JP03062

PATIENT
  Age: 61 Year
  Sex: Female
  Weight: 58 kg

DRUGS (5)
  1. PREDNISOLONE (NGX) [Suspect]
     Indication: HENOCH-SCHONLEIN PURPURA
     Dosage: 40 MG, UNK
     Route: 065
  2. PREDNISOLONE (NGX) [Suspect]
     Dosage: 30 MG, UNK
     Route: 065
  3. PREDNISOLONE (NGX) [Suspect]
     Dosage: 60 MG, UNK
     Route: 065
  4. PREDNISOLONE (NGX) [Suspect]
     Dosage: 17.5 MG, UNK
     Route: 065
  5. METHYLPREDNISOLONE ACETATE [Suspect]
     Dosage: 500 MG, QD
     Route: 065

REACTIONS (6)
  - DEEP VEIN THROMBOSIS [None]
  - DIABETES MELLITUS [None]
  - GLYCOSYLATED HAEMOGLOBIN INCREASED [None]
  - HENOCH-SCHONLEIN PURPURA [None]
  - MEDICAL DEVICE IMPLANTATION [None]
  - PULMONARY EMBOLISM [None]
